FAERS Safety Report 13383610 (Version 1)
Quarter: 2017Q1

REPORT INFORMATION
  Report Type: Report from Study
  Country: US (occurrence: US)
  Receive Date: 20170329
  Receipt Date: 20170329
  Transmission Date: 20170429
  Serious: Yes (Other)
  Sender: FDA-Public Use
  Company Number: US-PFIZER INC-2017133286

PATIENT

DRUGS (5)
  1. MERCAPTOPURINE. [Concomitant]
     Active Substance: MERCAPTOPURINE
     Indication: T-CELL TYPE ACUTE LEUKAEMIA
     Dosage: ONE DOSE PER WEEK FOR A TOTAL OF 20 WEEKS
  2. METHOTREXATE. [Concomitant]
     Active Substance: METHOTREXATE
     Indication: T-CELL TYPE ACUTE LEUKAEMIA
     Dosage: ONE DOSE PER WEEK FOR A TOTAL OF 20 WEEKS
  3. DOXORUBICIN HCL [Suspect]
     Active Substance: DOXORUBICIN HYDROCHLORIDE
     Indication: T-CELL TYPE ACUTE LEUKAEMIA
     Dosage: 360 MG/M2, CYCLIC (CONTINUING EVERY 3 WEEKS UNTIL THE CUMULATIVE DOSE)
     Route: 037
  4. VINCRISTINE [Concomitant]
     Active Substance: VINCRISTINE
     Indication: T-CELL TYPE ACUTE LEUKAEMIA
     Dosage: ONE DOSE PER WEEK FOR A TOTAL OF 20 WEEKS
  5. PREDNISONE. [Concomitant]
     Active Substance: PREDNISONE
     Indication: T-CELL TYPE ACUTE LEUKAEMIA
     Dosage: ONE DOSE PER WEEK FOR A TOTAL OF 20 WEEKS

REACTIONS (1)
  - Arrhythmia [Recovered/Resolved]
